FAERS Safety Report 10899529 (Version 1)
Quarter: 2015Q1

REPORT INFORMATION
  Report Type: Report from Study
  Country: IN (occurrence: IN)
  Receive Date: 20150309
  Receipt Date: 20150309
  Transmission Date: 20150721
  Serious: Yes (Other)
  Sender: FDA-Public Use
  Company Number: IN-BAXTER-2015BAX012595

PATIENT

DRUGS (1)
  1. HUMAN NORMAL IMMUNOGLOBULIN IVIG, TRIPLE VIRALLY REDUCED (TVR)SOLUTION [Suspect]
     Active Substance: HUMAN IMMUNOGLOBULIN G
     Indication: BRUTON^S AGAMMAGLOBULINAEMIA
     Route: 042

REACTIONS (1)
  - Respiratory disorder [Unknown]
